FAERS Safety Report 25188122 (Version 2)
Quarter: 2025Q3

REPORT INFORMATION
  Report Type: Report from Study
  Country: US (occurrence: US)
  Receive Date: 20250411
  Receipt Date: 20250731
  Transmission Date: 20251020
  Serious: Yes (Hospitalization)
  Sender: ALEXION PHARMACEUTICALS
  Company Number: US-AstraZeneca-CH-00843710A

PATIENT
  Sex: Female
  Weight: 111 kg

DRUGS (1)
  1. OSIMERTINIB [Suspect]
     Active Substance: OSIMERTINIB
     Indication: Non-small cell lung cancer
     Dosage: 80 MILLIGRAM, QD
     Dates: start: 202312

REACTIONS (7)
  - Pneumonitis [Unknown]
  - Lung disorder [Unknown]
  - Pulmonary oedema [Unknown]
  - Dyspnoea [Unknown]
  - Wheezing [Unknown]
  - Haemoptysis [Unknown]
  - Rhinorrhoea [Unknown]
